FAERS Safety Report 9790079 (Version 1)
Quarter: 2013Q4

REPORT INFORMATION
  Report Type: Spontaneous
  Country: US (occurrence: None)
  Receive Date: 20131230
  Receipt Date: 20131230
  Transmission Date: 20140711
  Serious: Yes (Hospitalization)
  Sender: FDA-Public Use
  Company Number: None

PATIENT
  Age: 63 Year
  Sex: Male
  Weight: 81.4 kg

DRUGS (1)
  1. BENDAMUSTINE [Suspect]
     Indication: HODGKIN^S DISEASE
     Dosage: QDX2 DAYS
     Route: 042
     Dates: start: 20131114, end: 20131115

REACTIONS (1)
  - Hallucination [None]
